FAERS Safety Report 5481797-9 (Version None)
Quarter: 2007Q4

REPORT INFORMATION
  Report Type: 
  Country: None (occurrence: None)
  Receive Date: 20071010
  Receipt Date: 20071002
  Transmission Date: 20080405
  Serious: Yes (Hospitalization)
  Sender: FDA-Public Use
  Company Number: FR-ROXANE LABORATORIES, INC-2007-BP-22242RO

PATIENT
  Age: 10 Year
  Sex: Male

DRUGS (2)
  1. METHOTREXATE [Suspect]
     Indication: OSTEOSARCOMA METASTATIC
     Dates: start: 20050201
  2. DOXORUBICIN HCL [Suspect]
     Indication: OSTEOSARCOMA METASTATIC
     Dates: start: 20050201

REACTIONS (9)
  - ALTERED STATE OF CONSCIOUSNESS [None]
  - APLASIA [None]
  - ASTHENIA [None]
  - CONVULSION [None]
  - ENCEPHALITIS [None]
  - HYPOTENSION [None]
  - NEUTROPENIA [None]
  - PYREXIA [None]
  - RASH VESICULAR [None]
